FAERS Safety Report 7339182-0 (Version None)
Quarter: 2011Q1

REPORT INFORMATION
  Report Type: 
  Country: None (occurrence: None)
  Receive Date: 20110308
  Receipt Date: 20110223
  Transmission Date: 20110831
  Serious: Yes (Hospitalization)
  Sender: FDA-Public Use
  Company Number: US-ACTELION-A-US2010-37851

PATIENT

DRUGS (2)
  1. TRACLEER [Suspect]
     Indication: PULMONARY ARTERIAL HYPERTENSION
     Dosage: UNK
     Route: 048
     Dates: start: 20091204
  2. COUMADIN [Concomitant]

REACTIONS (4)
  - PULMONARY THROMBOSIS [None]
  - HAEMOPTYSIS [None]
  - VASCULAR OPERATION [None]
  - SYNCOPE [None]
